FAERS Safety Report 9708214 (Version 5)
Quarter: 2014Q2

REPORT INFORMATION
  Report Type: Spontaneous
  Country: US (occurrence: US)
  Receive Date: 20131125
  Receipt Date: 20140409
  Transmission Date: 20141212
  Serious: Yes (Hospitalization, Disabling, Other)
  Sender: FDA-Public Use
  Company Number: US-009507513-1012USA02296

PATIENT
  Sex: Female
  Weight: 55.34 kg

DRUGS (11)
  1. FOSAMAX [Suspect]
     Indication: OSTEOPOROSIS
     Dosage: 70 MG, QW
     Route: 048
     Dates: start: 200008
  2. FOSAMAX [Suspect]
     Indication: OSTEOPENIA
     Dosage: 10 MG, QD
     Route: 048
     Dates: start: 200008, end: 20001020
  3. FOSAMAX [Suspect]
     Dosage: 70 MG, QW
     Route: 048
     Dates: start: 20001020, end: 200904
  4. FOSAMAX [Suspect]
     Dosage: 70 MG, QW
     Route: 048
     Dates: start: 200203, end: 200507
  5. FOSAMAX PLUS D [Suspect]
     Indication: OSTEOPOROSIS
     Dosage: 70 MG, QW
     Route: 048
     Dates: start: 20051108, end: 20090630
  6. CENTRUM (MINERALS (UNSPECIFIED) (+) VITAMINS (UNSPECIFIED)) [Concomitant]
  7. ASCORBIC ACID [Concomitant]
  8. BIOTIN [Concomitant]
  9. CALTRATE (CALCIUM CARBONATE) [Concomitant]
  10. CITRACAL [Concomitant]
  11. CHOLECALCIFEROL [Concomitant]

REACTIONS (62)
  - Intramedullary rod insertion [Unknown]
  - Osteoporosis [Unknown]
  - Stress fracture [Unknown]
  - Low turnover osteopathy [Unknown]
  - Basal cell carcinoma [Recovered/Resolved]
  - Basosquamous carcinoma [Recovered/Resolved]
  - Fracture delayed union [Recovered/Resolved]
  - Meniscus injury [Unknown]
  - Foot deformity [Unknown]
  - Fall [Unknown]
  - Tibia fracture [Unknown]
  - Bone graft [Unknown]
  - Internal fixation of fracture [Unknown]
  - Osteonecrosis [Unknown]
  - Femur fracture [Unknown]
  - Meniscus injury [Unknown]
  - Gait disturbance [Unknown]
  - Vulvovaginal dryness [Unknown]
  - Essential hypertension [Unknown]
  - Pain [Unknown]
  - Anxiety [Unknown]
  - Rosacea [Unknown]
  - Nasopharyngitis [Unknown]
  - Hyperkeratosis [Unknown]
  - Eye infection [Unknown]
  - Gastrointestinal disorder [Unknown]
  - Dry skin [Unknown]
  - Eye disorder [Unknown]
  - Sinusitis [Unknown]
  - Asthma [Unknown]
  - Piriformis syndrome [Unknown]
  - Piriformis syndrome [Unknown]
  - Muscle strain [Unknown]
  - Gait disturbance [Unknown]
  - Hot flush [Recovered/Resolved]
  - Middle insomnia [Unknown]
  - Hyperthyroidism [Unknown]
  - Obsessive-compulsive disorder [Unknown]
  - Panic disorder [Recovered/Resolved]
  - Rectal haemorrhage [Unknown]
  - Joint stiffness [Unknown]
  - Muscular weakness [Unknown]
  - Procedural pain [Unknown]
  - Periodontitis [Unknown]
  - Intervertebral disc degeneration [Unknown]
  - Osteoarthritis [Unknown]
  - Foot deformity [Unknown]
  - Osteoarthritis [Unknown]
  - Synovial cyst [Unknown]
  - Cough [Unknown]
  - Bronchial hyperreactivity [Unknown]
  - Metrorrhagia [Unknown]
  - Joint stiffness [Unknown]
  - Drug intolerance [Unknown]
  - Heart rate irregular [Unknown]
  - Palpitations [Unknown]
  - Hypergammaglobulinaemia benign monoclonal [Unknown]
  - Mouth ulceration [Unknown]
  - Limb discomfort [Unknown]
  - Gastrooesophageal reflux disease [Unknown]
  - Epigastric discomfort [Unknown]
  - Arthralgia [Unknown]
